FAERS Safety Report 10993585 (Version 1)
Quarter: 2015Q2

REPORT INFORMATION
  Report Type: Report from Study
  Country: CH (occurrence: None)
  Receive Date: 20150403
  Receipt Date: 20150403
  Transmission Date: 20150821
  Serious: Yes (Death)
  Sender: FDA-Public Use
  Company Number: 2015027532

PATIENT
  Age: 66 Year
  Sex: Female

DRUGS (11)
  1. PANTOPRQAZOLE [Concomitant]
  2. CALCIUM FOLINATE [Concomitant]
     Active Substance: LEUCOVORIN CALCIUM
  3. ACYCLOVIR (ACICLOVIR) (ACICLOVIR) [Suspect]
     Active Substance: ACYCLOVIR
  4. METHOTREXATE SODIUM. [Suspect]
     Active Substance: METHOTREXATE SODIUM
     Dosage: 5500 MG, SINGLE?
  5. ESCITALOPRAM [Concomitant]
     Active Substance: ESCITALOPRAM OXALATE
  6. DALTEPARIN SODIUM (DALTEPARIN SODIUM) UNKNOWN [Concomitant]
     Active Substance: DALTEPARIN SODIUM
  7. AMOXICILLIN (AMOXICILLIN) [Suspect]
     Active Substance: AMOXICILLIN
  8. CALCIUM FOLINATE [Concomitant]
     Active Substance: LEUCOVORIN CALCIUM
  9. PREDNISONE. [Concomitant]
     Active Substance: PREDNISONE
  10. DIPYRONE (METAMIZOLE SODIUM) [Suspect]
     Active Substance: DIPYRONE
     Indication: PYREXIA
     Route: 042
  11. CEFTRIAXONE SODIUM. [Suspect]
     Active Substance: CEFTRIAXONE SODIUM

REACTIONS (2)
  - Sepsis [None]
  - Pancytopenia [None]

NARRATIVE: CASE EVENT DATE: 2012
